FAERS Safety Report 24046666 (Version 1)
Quarter: 2024Q3

REPORT INFORMATION
  Report Type: Spontaneous
  Country: US (occurrence: US)
  Receive Date: 20240703
  Receipt Date: 20240703
  Transmission Date: 20241017
  Serious: Yes (Hospitalization, Disabling, Other)
  Sender: ORGANON
  Company Number: US-ORGANON-O2407USA000177

PATIENT
  Sex: Male

DRUGS (1)
  1. SINGULAIR [Suspect]
     Active Substance: MONTELUKAST SODIUM
     Dosage: 10 MILLIGRAM, ONCE DAILY
     Route: 048
     Dates: start: 202406, end: 202406

REACTIONS (7)
  - Photopsia [Recovering/Resolving]
  - Balance disorder [Recovering/Resolving]
  - Sensory disturbance [Recovering/Resolving]
  - Gait inability [Recovering/Resolving]
  - Fear of falling [Recovering/Resolving]
  - Vertigo [Recovering/Resolving]
  - Cerebrovascular accident [Recovering/Resolving]

NARRATIVE: CASE EVENT DATE: 20240601
